FAERS Safety Report 5033258-9 (Version None)
Quarter: 2006Q2

REPORT INFORMATION
  Report Type: 
  Country: None (occurrence: None)
  Receive Date: 20060623
  Receipt Date: 20060605
  Transmission Date: 20061013
  Serious: Yes (Other)
  Sender: FDA-Public Use
  Company Number: FR-RB-3413-2006

PATIENT
  Age: 27 Year
  Sex: Female

DRUGS (6)
  1. BUPRENORPHINE HCL [Suspect]
     Indication: DRUG DEPENDENCE
     Route: 060
     Dates: start: 20000101
  2. BUPRENORPHINE HCL [Suspect]
     Route: 060
     Dates: start: 20020501
  3. BUPRENORPHINE HCL [Suspect]
     Route: 060
     Dates: start: 20021201
  4. BUPRENORPHINE HCL [Suspect]
     Route: 060
     Dates: start: 20030301
  5. BUPRENORPHINE HCL [Suspect]
     Route: 060
     Dates: start: 20031001, end: 20040101
  6. BUPRENORPHINE HCL [Suspect]
     Route: 060
     Dates: start: 20040101, end: 20040101

REACTIONS (3)
  - DENTAL CARIES [None]
  - TOOTH LOSS [None]
  - TOOTHACHE [None]
